FAERS Safety Report 9666025 (Version 4)
Quarter: 2014Q2

REPORT INFORMATION
  Report Type: Spontaneous
  Country: US (occurrence: US)
  Receive Date: 20131103
  Receipt Date: 20140407
  Transmission Date: 20141212
  Serious: Yes (Hospitalization)
  Sender: FDA-Public Use
  Company Number: US-JNJFOC-20131018163

PATIENT
  Sex: Female
  Weight: 15 kg

DRUGS (2)
  1. INFANT^S TYLENOL [Suspect]
     Route: 048
  2. INFANT^S TYLENOL [Suspect]
     Indication: PYREXIA
     Dosage: TOTAL INGESTES: APPROXIMATELY 4 TO 6 DOSES
     Route: 048
     Dates: start: 20080612, end: 20080613

REACTIONS (4)
  - Liver transplant [Unknown]
  - Acute hepatic failure [Recovering/Resolving]
  - Acute hepatic failure [Recovering/Resolving]
  - Coagulopathy [Recovered/Resolved]
